FAERS Safety Report 4297499-0 (Version None)
Quarter: 2004Q1

REPORT INFORMATION
  Report Type: 
  Country: None (occurrence: None)
  Receive Date: 20040218
  Receipt Date: 20040202
  Transmission Date: 20041129
  Serious: No
  Sender: FDA-Public Use
  Company Number: DE-GLAXOSMITHKLINE-D0043038A

PATIENT
  Age: 76 Year
  Sex: Female
  Weight: 77 kg

DRUGS (5)
  1. RELENZA [Suspect]
     Indication: INFLUENZA
     Dosage: 1BLS THREE TIMES PER DAY
     Route: 055
     Dates: start: 20031201, end: 20031201
  2. BISOHEXAL PLUS [Concomitant]
     Indication: HYPERTENSION
     Dosage: 35MG UNKNOWN
     Route: 048
     Dates: start: 20030901
  3. ACE-INHIBITOR [Concomitant]
     Indication: HYPERTENSION
     Route: 048
     Dates: end: 20031201
  4. MARCUMAR [Concomitant]
     Route: 048
  5. VITAMIN E [Concomitant]
     Route: 048

REACTIONS (5)
  - BACTERIAL INFECTION [None]
  - BRONCHITIS [None]
  - COUGH [None]
  - DYSPNOEA [None]
  - SUPERINFECTION [None]
